FAERS Safety Report 7103615-5 (Version None)
Quarter: 2010Q4

REPORT INFORMATION
  Report Type: 
  Country: None (occurrence: None)
  Receive Date: 20101115
  Receipt Date: 20101110
  Transmission Date: 20110411
  Serious: Yes (Death)
  Sender: FDA-Public Use
  Company Number: US-CELGENEUS-163-21880-10092603

PATIENT
  Sex: Male

DRUGS (5)
  1. REVLIMID [Suspect]
     Route: 048
     Dates: start: 20100825, end: 20100829
  2. ALLOPURINOL [Concomitant]
     Route: 065
  3. NORVASC [Concomitant]
     Route: 065
  4. HYDROCHLOROTHIAZIDE [Concomitant]
     Route: 065
  5. LABETALOL HCL [Concomitant]
     Route: 065

REACTIONS (1)
  - CHRONIC LYMPHOCYTIC LEUKAEMIA [None]
